FAERS Safety Report 7985093-7 (Version None)
Quarter: 2011Q4

REPORT INFORMATION
  Report Type: 
  Country: None (occurrence: None)
  Receive Date: 20111216
  Receipt Date: 20111212
  Transmission Date: 20120403
  Serious: Yes (Life-Threatening)
  Sender: FDA-Public Use
  Company Number: PHEH2011US011460

PATIENT
  Sex: Female

DRUGS (3)
  1. NORVASC [Suspect]
     Indication: BLOOD PRESSURE
  2. EXFORGE [Suspect]
     Indication: BLOOD PRESSURE
  3. DIOVAN [Suspect]
     Indication: BLOOD PRESSURE

REACTIONS (9)
  - DRUG HYPERSENSITIVITY [None]
  - VAGINAL INFLAMMATION [None]
  - OESOPHAGITIS [None]
  - INFLUENZA [None]
  - HYPERTENSION [None]
  - FEELING ABNORMAL [None]
  - STOMATITIS [None]
  - PAIN [None]
  - THROAT IRRITATION [None]
